FAERS Safety Report 15601008 (Version 1)
Quarter: 2018Q4

REPORT INFORMATION
  Report Type: Spontaneous
  Country: US (occurrence: US)
  Receive Date: 20181108
  Receipt Date: 20181108
  Transmission Date: 20190205
  Serious: Yes (Other)
  Sender: FDA-Public Use
  Company Number: None

PATIENT
  Age: 32 Year
  Sex: Male

DRUGS (1)
  1. CIPRO [Suspect]
     Active Substance: CIPROFLOXACIN HYDROCHLORIDE
     Indication: URINARY TRACT INFECTION
     Route: 048
     Dates: start: 20181022, end: 20181024

REACTIONS (12)
  - Hypoaesthesia [None]
  - Dyslexia [None]
  - Joint dislocation [None]
  - Tendon pain [None]
  - Arthralgia [None]
  - Hallucination [None]
  - Joint stiffness [None]
  - Asthenia [None]
  - Confusional state [None]
  - Photophobia [None]
  - Paraesthesia [None]
  - Dyscalculia [None]

NARRATIVE: CASE EVENT DATE: 20181024
